FAERS Safety Report 8578113-2 (Version None)
Quarter: 2012Q3

REPORT INFORMATION
  Report Type: 
  Country: None (occurrence: None)
  Receive Date: 20120808
  Receipt Date: 20120806
  Transmission Date: 20120928
  Serious: Yes (Other)
  Sender: FDA-Public Use
  Company Number: PHHY2009CA24453

PATIENT
  Sex: Female

DRUGS (1)
  1. SANDOSTATIN LAR [Suspect]
     Indication: NEUROENDOCRINE TUMOUR
     Dosage: 30 MG, QMO
     Route: 030
     Dates: start: 20080912

REACTIONS (10)
  - FATIGUE [None]
  - NASOPHARYNGITIS [None]
  - PYREXIA [None]
  - INSOMNIA [None]
  - DYSPNOEA [None]
  - FLUSHING [None]
  - BLOOD PRESSURE SYSTOLIC INCREASED [None]
  - HEART RATE INCREASED [None]
  - ASTHENIA [None]
  - PALPITATIONS [None]
